FAERS Safety Report 19740811 (Version 1)
Quarter: 2021Q3

REPORT INFORMATION
  Report Type: Other
  Country: CA (occurrence: CA)
  Receive Date: 20210825
  Receipt Date: 20210825
  Transmission Date: 20211014
  Serious: Yes (Hospitalization)
  Sender: FDA-Public Use
  Company Number: CA-CELLTRION INC.-2021CA011321

PATIENT

DRUGS (24)
  1. RITUXIMAB (UNKNOWN) [Suspect]
     Active Substance: RITUXIMAB
     Indication: PEMPHIGOID
     Dosage: 1000 MG, CYCLICAL
     Route: 042
  2. METOPROLOL. [Concomitant]
     Active Substance: METOPROLOL
  3. OLMESARTAN [Concomitant]
     Active Substance: OLMESARTAN
  4. OLMETEC [Concomitant]
     Active Substance: OLMESARTAN MEDOXOMIL
  5. SILVER SULFADIAZINE. [Concomitant]
     Active Substance: SILVER SULFADIAZINE
  6. APIXABAN [Concomitant]
     Active Substance: APIXABAN
  7. ELIQUIS [Concomitant]
     Active Substance: APIXABAN
  8. LATANOPROST. [Concomitant]
     Active Substance: LATANOPROST
     Route: 047
  9. SPIRONOLACTONE. [Concomitant]
     Active Substance: SPIRONOLACTONE
  10. ATORVASTATIN [Concomitant]
     Active Substance: ATORVASTATIN
     Route: 065
  11. BENADRYL [Concomitant]
     Active Substance: DIPHENHYDRAMINE HYDROCHLORIDE
     Indication: PREMEDICATION
     Dosage: 50 MILLIGRAM
     Route: 048
  12. IMOVANE [Concomitant]
     Active Substance: ZOPICLONE
  13. METHYLPREDNISOLONE SODIUM SUCCINATE. [Concomitant]
     Active Substance: METHYLPREDNISOLONE SODIUM SUCCINATE
     Indication: PREMEDICATION
     Dosage: 100 MILLIGRAM
     Route: 042
  14. MYCOPHENOLATE SODIUM [Concomitant]
     Active Substance: MYCOPHENOLATE SODIUM
  15. PREDNISONE. [Concomitant]
     Active Substance: PREDNISONE
  16. AZATHIOPRINE. [Concomitant]
     Active Substance: AZATHIOPRINE
     Indication: PEMPHIGUS
  17. DILTIAZEM. [Concomitant]
     Active Substance: DILTIAZEM
  18. FLECAINIDE [Concomitant]
     Active Substance: FLECAINIDE
  19. AMLODIPINE [Concomitant]
     Active Substance: AMLODIPINE BESYLATE
  20. CALCIUM [Concomitant]
     Active Substance: CALCIUM
  21. CLOBETASOL [Concomitant]
     Active Substance: CLOBETASOL
  22. OMEPRAZOLE. [Concomitant]
     Active Substance: OMEPRAZOLE
  23. RISEDRONATE [Concomitant]
     Active Substance: RISEDRONATE SODIUM
  24. TYLENOL [Concomitant]
     Active Substance: ACETAMINOPHEN
     Indication: PREMEDICATION
     Dosage: 650 MILLIGRAM
     Route: 048

REACTIONS (12)
  - Off label use [Recovered/Resolved]
  - Oxygen saturation decreased [Recovered/Resolved]
  - Blood pressure fluctuation [Recovered/Resolved]
  - Blood pressure increased [Recovered/Resolved]
  - Headache [Recovered/Resolved]
  - Heart rate increased [Recovered/Resolved]
  - Intraocular pressure test [Recovered/Resolved]
  - Respiratory rate increased [Recovered/Resolved]
  - Intentional product use issue [Recovered/Resolved]
  - Off label use [Unknown]
  - Atrial fibrillation [Recovered/Resolved]
  - Blood pressure systolic increased [Recovered/Resolved]
